FAERS Safety Report 5935397-4 (Version None)
Quarter: 2008Q4

REPORT INFORMATION
  Report Type: 
  Country: None (occurrence: None)
  Receive Date: 20081030
  Receipt Date: 20081020
  Transmission Date: 20090506
  Serious: Yes (Other)
  Sender: FDA-Public Use
  Company Number: GB-ROCHE-592391

PATIENT
  Age: 68 Year
  Sex: Female
  Weight: 66 kg

DRUGS (3)
  1. XENICAL [Suspect]
     Indication: OBESITY
     Route: 048
     Dates: start: 20060928, end: 20080906
  2. BENDROFLUMETHIAZIDE [Concomitant]
  3. OLMESARTAN MEDOXOMIL [Concomitant]

REACTIONS (1)
  - RENAL FAILURE CHRONIC [None]
